FAERS Safety Report 5659914-7 (Version None)
Quarter: 2008Q1

REPORT INFORMATION
  Report Type: 
  Country: None (occurrence: None)
  Receive Date: 20080311
  Receipt Date: 20070718
  Transmission Date: 20080703
  Serious: No
  Sender: FDA-Public Use
  Company Number: US-BAYER-200712567BCC

PATIENT
  Sex: Female
  Weight: 68 kg

DRUGS (3)
  1. MIDOL [Suspect]
     Indication: DRUG USE FOR UNKNOWN INDICATION
     Route: 048
  2. ABILIFY [Concomitant]
  3. LAMICTAL [Concomitant]

REACTIONS (1)
  - DRUG USE FOR UNKNOWN INDICATION [None]
